FAERS Safety Report 5040798-5 (Version None)
Quarter: 2006Q2

REPORT INFORMATION
  Report Type: 
  Country: None (occurrence: None)
  Receive Date: 20060601
  Receipt Date: 20060306
  Transmission Date: 20061013
  Serious: No
  Sender: FDA-Public Use
  Company Number: 2006PV009754

PATIENT
  Age: 39 Year
  Sex: Female
  Weight: 94.3482 kg

DRUGS (4)
  1. BYETTA [Suspect]
     Indication: DIABETES MELLITUS NON-INSULIN-DEPENDENT
     Dosage: 10 MCG;SC; 5 MCG;SC
     Route: 058
     Dates: start: 20051201, end: 20060101
  2. BYETTA [Suspect]
     Indication: DIABETES MELLITUS NON-INSULIN-DEPENDENT
     Dosage: 10 MCG;SC; 5 MCG;SC
     Route: 058
     Dates: start: 20060101
  3. GLUCOPHAGE XR [Concomitant]
  4. AMARYL [Concomitant]

REACTIONS (1)
  - INJECTION SITE URTICARIA [None]
